APPROVED DRUG PRODUCT: GLYNASE
Active Ingredient: GLYBURIDE
Strength: 4.5MG **Federal Register determination that product was not discontinued or withdrawn for safety or effectiveness reasons**
Dosage Form/Route: TABLET;ORAL
Application: N020051 | Product #003
Applicant: PFIZER INC
Approved: Sep 24, 1993 | RLD: Yes | RS: No | Type: DISCN